FAERS Safety Report 10866559 (Version 1)
Quarter: 2015Q1

REPORT INFORMATION
  Report Type: Spontaneous
  Country: US (occurrence: None)
  Receive Date: 20150220
  Receipt Date: 20150220
  Transmission Date: 20150721
  Serious: No
  Sender: FDA-Public Use
  Company Number: None

PATIENT
  Age: 74 Year
  Sex: Female
  Weight: 85.73 kg

DRUGS (14)
  1. LIPO-FLAVINOID [Concomitant]
  2. B6 [Concomitant]
     Active Substance: PYRIDOXINE HYDROCHLORIDE
  3. BENICAR [Concomitant]
     Active Substance: OLMESARTAN MEDOXOMIL
  4. LOVASTATIN. [Concomitant]
     Active Substance: LOVASTATIN
  5. LEVOTHYROXIN [Concomitant]
     Active Substance: LEVOTHYROXINE
  6. ONGLYZA [Concomitant]
     Active Substance: SAXAGLIPTIN HYDROCHLORIDE
  7. PRESCRIPTION VIT D [Concomitant]
  8. MAGNESIUM [Concomitant]
     Active Substance: MAGNESIUM
  9. COQ10 [Concomitant]
     Active Substance: UBIDECARENONE
  10. VITAMIN B12 [Concomitant]
     Active Substance: CYANOCOBALAMIN
  11. CENTRUM SILLER [Concomitant]
  12. TRAMADOL [Suspect]
     Active Substance: TRAMADOL
     Indication: MIGRAINE
     Dosage: FOR HEADACHES
     Route: 048
     Dates: start: 20150113
  13. GLIPIZIDE. [Concomitant]
     Active Substance: GLIPIZIDE
  14. OMEPRAZOLE. [Concomitant]
     Active Substance: OMEPRAZOLE

REACTIONS (5)
  - Nausea [None]
  - Product quality issue [None]
  - Retching [None]
  - Dizziness [None]
  - Product substitution issue [None]
